FAERS Safety Report 6129398-3 (Version None)
Quarter: 2009Q1

REPORT INFORMATION
  Report Type: 
  Country: None (occurrence: None)
  Receive Date: 20090324
  Receipt Date: 20090313
  Transmission Date: 20090719
  Serious: Yes (Other)
  Sender: FDA-Public Use
  Company Number: US-JNJFOC-20090303703

PATIENT
  Sex: Male
  Weight: 96.16 kg

DRUGS (10)
  1. REMICADE [Suspect]
     Indication: COLITIS ULCERATIVE
     Route: 042
  2. ALLERGY SHOT [Concomitant]
  3. ASPIRIN [Concomitant]
     Route: 048
  4. COLAZAL [Concomitant]
     Route: 048
  5. GLYBURIDE [Concomitant]
  6. LIPITOR [Concomitant]
     Route: 048
  7. LISINOPRIL [Concomitant]
     Route: 048
  8. AMLODIPINE [Concomitant]
     Route: 048
  9. PREVACID [Concomitant]
     Route: 048
  10. SPIRIVA [Concomitant]
     Route: 055

REACTIONS (5)
  - ABASIA [None]
  - COUGH [None]
  - PAIN [None]
  - PAIN IN JAW [None]
  - PYREXIA [None]
